FAERS Safety Report 4353207-6 (Version None)
Quarter: 2004Q2

REPORT INFORMATION
  Report Type: 
  Country: None (occurrence: None)
  Receive Date: 20040429
  Receipt Date: 20040416
  Transmission Date: 20050107
  Serious: Yes (Disabling, Other)
  Sender: FDA-Public Use
  Company Number: 2004026285

PATIENT
  Age: 16 Year
  Sex: Female
  Weight: 50.8029 kg

DRUGS (1)
  1. NEURONTIN [Suspect]
     Indication: REFLEX SYMPATHETIC DYSTROPHY
     Dosage: 300 MG (DAILY
     Dates: start: 20030301, end: 20030301

REACTIONS (8)
  - ABASIA [None]
  - ASTHENIA [None]
  - BALANCE DISORDER [None]
  - FALL [None]
  - FEELING ABNORMAL [None]
  - HYPOAESTHESIA [None]
  - NERVOUS SYSTEM DISORDER [None]
  - TREMOR [None]
